FAERS Safety Report 5642321-0 (Version None)
Quarter: 2008Q1

REPORT INFORMATION
  Report Type: 
  Country: None (occurrence: None)
  Receive Date: 20080225
  Receipt Date: 20080128
  Transmission Date: 20080703
  Serious: Yes (Hospitalization)
  Sender: FDA-Public Use
  Company Number: TRP_01041_2008

PATIENT
  Sex: Female
  Weight: 68.9467 kg

DRUGS (8)
  1. INFERGEN [Suspect]
     Indication: HEPATITIS C
     Dosage: 15 UG QD SUBCUTANEOUS
     Route: 058
     Dates: start: 20071207, end: 20080101
  2. RIBAVIRIN [Suspect]
     Indication: HEPATITIS C
     Dosage: 1000 MG, , 400 MG + 600 MG DAILY ORAL
     Route: 048
     Dates: start: 20071207, end: 20080101
  3. INFERGEN/INTERFERON ALFACON01/THREE RIVERS PHARMA [Suspect]
     Indication: HEPATITIS C
     Dosage: 15 UG QD SUBCUTANEOUS
     Route: 058
     Dates: start: 20080128
  4. RIBAVIRIN [Suspect]
     Indication: HEPATITIS C
     Dosage: 1000 MG, 400 MG + 600 MG DAILY, ORAL
     Route: 048
     Dates: start: 20080128
  5. PHENERGAN HCL [Concomitant]
  6. CELEXA [Concomitant]
  7. CLARITIN [Concomitant]
  8. HYDROCODONE [Concomitant]

REACTIONS (1)
  - PNEUMONIA [None]
